FAERS Safety Report 13059746 (Version 3)
Quarter: 2020Q4

REPORT INFORMATION
  Report Type: Report from Study
  Country: CA (occurrence: CA)
  Receive Date: 20161223
  Receipt Date: 20201208
  Transmission Date: 20210113
  Serious: Yes (Hospitalization, Other)
  Sender: FDA-Public Use
  Company Number: CA-JNJFOC-20161216657

PATIENT
  Age: 63 Year
  Sex: Male
  Weight: 109 kg

DRUGS (2)
  1. STELARA [Suspect]
     Active Substance: USTEKINUMAB
     Indication: PSORIASIS
     Route: 058
     Dates: start: 20111104, end: 2016
  2. STELARA [Suspect]
     Active Substance: USTEKINUMAB

REACTIONS (4)
  - Aphasia [Unknown]
  - Cutaneous lymphoma [Unknown]
  - Throat cancer [Unknown]
  - Laryngeal cancer [Unknown]

NARRATIVE: CASE EVENT DATE: 20160927
